FAERS Safety Report 17621158 (Version 2)
Quarter: 2021Q4

REPORT INFORMATION
  Report Type: Other
  Country: CA (occurrence: CA)
  Receive Date: 20200403
  Receipt Date: 20211027
  Transmission Date: 20220303
  Serious: Yes (Death, Other)
  Sender: FDA-Public Use
  Company Number: CA-PFIZER INC-2020137136

PATIENT
  Age: 3 Month
  Sex: Male

DRUGS (4)
  1. VINCRISTINE SULFATE [Suspect]
     Active Substance: VINCRISTINE SULFATE
     Indication: Embryonal rhabdomyosarcoma
     Dosage: UNK
     Route: 065
  2. IRINOTECAN HYDROCHLORIDE [Suspect]
     Active Substance: IRINOTECAN HYDROCHLORIDE
     Indication: Embryonal rhabdomyosarcoma
     Dosage: UNK
     Route: 065
  3. COSMEGEN [Suspect]
     Active Substance: DACTINOMYCIN
     Indication: Embryonal rhabdomyosarcoma
     Dosage: UNK
     Route: 065
  4. CYCLOPHOSPHAMIDE [Suspect]
     Active Substance: CYCLOPHOSPHAMIDE
     Indication: Embryonal rhabdomyosarcoma
     Dosage: UNK
     Route: 065

REACTIONS (2)
  - Cytogenetic abnormality [Fatal]
  - Neoplasm progression [Fatal]
